FAERS Safety Report 4515580-5 (Version None)
Quarter: 2004Q4

REPORT INFORMATION
  Report Type: 
  Country: None (occurrence: None)
  Receive Date: 20040929
  Receipt Date: 20040608
  Transmission Date: 20050328
  Serious: Yes (Hospitalization)
  Sender: FDA-Public Use
  Company Number: 2004-02540

PATIENT
  Age: 33 Year
  Sex: Female
  Weight: 86.4 kg

DRUGS (23)
  1. INFED [Suspect]
     Indication: IRON DEFICIENCY ANAEMIA
     Dosage: 56 MG OVER 15 MINUETS, INTRAVENOUS
     Route: 042
     Dates: start: 20040531, end: 20040531
  2. EFFEXOR [Concomitant]
  3. LEVOTHYROXINE SODIUM [Concomitant]
  4. AMBIEN [Concomitant]
  5. ZOFRAN [Concomitant]
  6. XANAX [Concomitant]
  7. ZOLOFT [Concomitant]
  8. MULTI-VITAMINS [Concomitant]
  9. PREDNISONE [Concomitant]
  10. PYRIDIUM [Concomitant]
  11. HYDROCORTISONE [Concomitant]
  12. ... [Concomitant]
  13. ... [Concomitant]
  14. ... [Concomitant]
  15. ... [Concomitant]
  16. ... [Concomitant]
  17. ... [Concomitant]
  18. ... [Concomitant]
  19. ... [Concomitant]
  20. ... [Concomitant]
  21. ... [Concomitant]
  22. ... [Concomitant]
  23. ... [Concomitant]

REACTIONS (5)
  - INFUSION RELATED REACTION [None]
  - INFUSION SITE PAIN [None]
  - INFUSION SITE SWELLING [None]
  - THROMBOPHLEBITIS SUPERFICIAL [None]
  - URINARY RETENTION [None]
